FAERS Safety Report 26074790 (Version 2)
Quarter: 2025Q4

REPORT INFORMATION
  Report Type: Report from Study
  Country: TH (occurrence: TH)
  Receive Date: 20251121
  Receipt Date: 20251128
  Transmission Date: 20260117
  Serious: Yes (Other)
  Sender: EXELIXIS
  Company Number: TH-IPSEN Group, Research and Development-2025-10803

PATIENT
  Age: 81 Year
  Sex: Female

DRUGS (2)
  1. CABOMETYX [Suspect]
     Active Substance: CABOZANTINIB S-MALATE
     Indication: Renal cell carcinoma
     Dosage: ONCE DAILY
     Route: 048
     Dates: start: 20250411
  2. CABOMETYX [Suspect]
     Active Substance: CABOZANTINIB S-MALATE
     Dosage: EVERY OTHER DAY
     Route: 048
     Dates: start: 20250514, end: 20251108

REACTIONS (8)
  - Hypertension [Recovering/Resolving]
  - Oropharyngeal pain [Unknown]
  - Vomiting [Unknown]
  - Decreased appetite [Unknown]
  - Pain in extremity [Unknown]
  - Erythema [Unknown]
  - Dyspepsia [Unknown]
  - Off label use [Unknown]

NARRATIVE: CASE EVENT DATE: 20250506
